FAERS Safety Report 8455201-2 (Version None)
Quarter: 2012Q2

REPORT INFORMATION
  Report Type: 
  Country: None (occurrence: None)
  Receive Date: 20120621
  Receipt Date: 20120612
  Transmission Date: 20120825
  Serious: Yes (Hospitalization)
  Sender: FDA-Public Use
  Company Number: FR-ASTELLAS-2012EU004272

PATIENT
  Sex: Female

DRUGS (2)
  1. VESICARE [Suspect]
     Dosage: 1 DF, UID/QD
     Route: 048
     Dates: start: 20111201, end: 20120113
  2. VESICARE [Suspect]
     Indication: URINARY INCONTINENCE
     Dosage: 1 DF, UID/QD
     Route: 048
     Dates: start: 20111001

REACTIONS (2)
  - DRUG INEFFECTIVE [None]
  - CEREBROVASCULAR ACCIDENT [None]
